FAERS Safety Report 21034695 (Version 1)
Quarter: 2022Q3

REPORT INFORMATION
  Report Type: Spontaneous
  Country: US (occurrence: None)
  Receive Date: 20220701
  Receipt Date: 20220701
  Transmission Date: 20221027
  Serious: Yes (Death)
  Sender: FDA-Public Use
  Company Number: None

PATIENT
  Sex: Female

DRUGS (1)
  1. LUCENTIS [Suspect]
     Active Substance: RANIBIZUMAB
     Indication: Neovascular age-related macular degeneration
     Dosage: OTHER QUANTITY : 0.5MG/0.5ML;?FREQUENCY : MONTHLY;?OTHER ROUTE : INTRAVITREAL;?
     Route: 050
     Dates: start: 20170825

REACTIONS (1)
  - Death [None]
